FAERS Safety Report 8204091-1 (Version None)
Quarter: 2012Q1

REPORT INFORMATION
  Report Type: 
  Country: None (occurrence: None)
  Receive Date: 20120313
  Receipt Date: 20120309
  Transmission Date: 20120608
  Serious: Yes (Life-Threatening)
  Sender: FDA-Public Use
  Company Number: DE-B.I. PHARMACEUTICALS,INC./RIDGEFIELD-2012-DE-00634DE

PATIENT
  Sex: Male
  Weight: 88 kg

DRUGS (4)
  1. PRADAXA [Suspect]
     Indication: ATRIAL FIBRILLATION
     Dosage: 220 MG
     Route: 048
     Dates: start: 20111115, end: 20111224
  2. SIMVASTATIN [Concomitant]
     Indication: MYOCARDIAL INFARCTION
     Dosage: 40 MG
     Route: 048
     Dates: start: 20110927
  3. BISOPROLOL FUMARATE [Concomitant]
     Indication: MYOCARDIAL INFARCTION
     Dosage: 2.5 MG
     Route: 048
     Dates: start: 20110927
  4. EFFIENT [Suspect]
     Indication: MYOCARDIAL INFARCTION
     Dosage: 10 NR
     Route: 048
     Dates: start: 20110927

REACTIONS (2)
  - HEMIANOPIA [None]
  - CEREBROVASCULAR ACCIDENT [None]
